FAERS Safety Report 9232884 (Version 1)
Quarter: 2013Q2

REPORT INFORMATION
  Report Type: Spontaneous
  Country: US (occurrence: None)
  Receive Date: 20130415
  Receipt Date: 20130415
  Transmission Date: 20140414
  Serious: Yes (Disabling)
  Sender: FDA-Public Use
  Company Number: None

PATIENT
  Age: 74 Year
  Sex: Female
  Weight: 65.77 kg

DRUGS (1)
  1. PREDNISONE [Suspect]
     Indication: COUGH
     Dosage: 5X2DAY4X2DAY3X2DAY2X2DAY1X2DAY
     Dates: start: 20130401, end: 20130407

REACTIONS (3)
  - Muscle spasms [None]
  - Impaired work ability [None]
  - Product quality issue [None]
